FAERS Safety Report 6639197-1 (Version None)
Quarter: 2010Q1

REPORT INFORMATION
  Report Type: 
  Country: None (occurrence: None)
  Receive Date: 20100317
  Receipt Date: 20100310
  Transmission Date: 20100710
  Serious: Yes (Hospitalization, Other)
  Sender: FDA-Public Use
  Company Number: CA-ROCHE-606962

PATIENT
  Sex: Male

DRUGS (18)
  1. PEG-INTERFERON ALFA 2A (RO 25-8310) [Suspect]
     Indication: HEPATITIS C
     Route: 058
     Dates: start: 20081030, end: 20081218
  2. PEG-INTERFERON ALFA 2A (RO 25-8310) [Suspect]
     Route: 058
     Dates: start: 20090101, end: 20090218
  3. RIBAVIRIN [Suspect]
     Indication: HEPATITIS C
     Route: 048
     Dates: start: 20081030, end: 20081116
  4. RIBAVIRIN [Suspect]
     Route: 048
     Dates: start: 20081117, end: 20081222
  5. RIBAVIRIN [Suspect]
     Route: 048
     Dates: start: 20081225, end: 20081229
  6. RIBAVIRIN [Suspect]
     Route: 048
     Dates: start: 20081230
  7. BLINDED VX-950 [Suspect]
     Indication: HEPATITIS C
     Dosage: DOSE BLINDED.
     Route: 048
     Dates: start: 20081030, end: 20081222
  8. BLINDED VX-950 [Suspect]
     Dosage: SAME DOSE
     Route: 048
     Dates: start: 20081225, end: 20090122
  9. GRAVOL TAB [Concomitant]
     Indication: NAUSEA
     Route: 048
     Dates: start: 20081031
  10. TYLENOL-500 [Concomitant]
     Indication: MYALGIA
     Dosage: OTHER INDICATION: ARTHRALGIA
     Route: 048
     Dates: start: 20081030
  11. CITALOPRAM HYDROBROMIDE [Concomitant]
     Indication: DEPRESSION
     Route: 048
     Dates: start: 20080101
  12. BUPROPION HCL [Concomitant]
     Indication: DEPRESSION
     Route: 048
     Dates: start: 20080101, end: 20090112
  13. TRAZODONE HCL [Concomitant]
     Indication: INSOMNIA
     Route: 048
     Dates: start: 20090118
  14. ATARAX [Concomitant]
     Indication: RASH GENERALISED
     Route: 048
     Dates: start: 20090209
  15. FISH OIL [Concomitant]
     Indication: SUPPLEMENTATION THERAPY
     Route: 048
     Dates: start: 20080101
  16. THIAMINE [Concomitant]
     Route: 042
     Dates: start: 20081222
  17. EPREX [Concomitant]
     Route: 058
     Dates: start: 20081119, end: 20081119
  18. DEMEROL [Concomitant]
     Route: 030
     Dates: start: 20081222, end: 20081222

REACTIONS (2)
  - CONVULSION [None]
  - MIGRAINE [None]
